FAERS Safety Report 9379569 (Version 1)
Quarter: 2013Q3

REPORT INFORMATION
  Report Type: Spontaneous
  Country: US (occurrence: US)
  Receive Date: 20130702
  Receipt Date: 20130702
  Transmission Date: 20140515
  Serious: Yes (Hospitalization)
  Sender: FDA-Public Use
  Company Number: US-SANOFI-AVENTIS-2012SA065385

PATIENT
  Age: 54 Year
  Sex: Female

DRUGS (5)
  1. AMBIEN CR [Suspect]
     Indication: INSOMNIA
     Route: 048
     Dates: start: 20120831
  2. AMBIEN CR [Suspect]
     Indication: INSOMNIA
     Dosage: TOOK 25 TABLETS
     Route: 048
     Dates: start: 20121115
  3. AMBIEN CR [Suspect]
     Indication: INSOMNIA
     Route: 048
  4. KEPPRA [Concomitant]
  5. SYNTHROID [Concomitant]

REACTIONS (3)
  - Adverse event [Unknown]
  - Intentional overdose [Unknown]
  - Drug ineffective [Unknown]
